FAERS Safety Report 9458728 (Version 1)
Quarter: 2013Q3

REPORT INFORMATION
  Report Type: Spontaneous
  Country: US (occurrence: US)
  Receive Date: 20130814
  Receipt Date: 20130814
  Transmission Date: 20140515
  Serious: No
  Sender: FDA-Public Use
  Company Number: US-TEVA-425833USA

PATIENT
  Sex: Male
  Weight: 81.72 kg

DRUGS (4)
  1. QNASL [Suspect]
     Indication: EAR DISCOMFORT
     Dosage: 320 MICROGRAM DAILY; 2 SPRAYS IN EACH NOSTRIL, MORNING AND NIGHT
     Dates: start: 20130605, end: 20130611
  2. QNASL [Suspect]
     Dosage: 640 MICROGRAM DAILY;
  3. FLUTICASONE [Suspect]
     Indication: EAR DISCOMFORT
     Route: 045
     Dates: start: 20130515, end: 20130522
  4. FLUTICASONE [Suspect]
     Route: 045
     Dates: start: 20130705, end: 20130707

REACTIONS (5)
  - Overdose [Unknown]
  - Myalgia [Unknown]
  - Myalgia [Unknown]
  - Pruritus [Unknown]
  - Abdominal pain upper [Unknown]
